FAERS Safety Report 5468178-9 (Version None)
Quarter: 2007Q3

REPORT INFORMATION
  Report Type: 
  Country: None (occurrence: None)
  Receive Date: 20070926
  Receipt Date: 20070924
  Transmission Date: 20080115
  Serious: Yes (Other)
  Sender: FDA-Public Use
  Company Number: US-ASTRAZENECA-2007UW22338

PATIENT
  Age: 74 Year
  Sex: Female
  Weight: 76.2 kg

DRUGS (5)
  1. ARIMIDEX [Suspect]
     Indication: BREAST CANCER METASTATIC
     Dates: start: 19990101
  2. ZOMETA [Concomitant]
     Dosage: TWICE A YEAR
  3. GENERIC ANTI-HYPERTENSION MEDICATION [Concomitant]
  4. NEXIUM [Concomitant]
     Route: 048
  5. ANTI-CHOLESTEROL MEDICATION [Concomitant]

REACTIONS (2)
  - BONE DENSITY DECREASED [None]
  - TOOTH DISORDER [None]
